FAERS Safety Report 20395709 (Version 1)
Quarter: 2022Q1

REPORT INFORMATION
  Report Type: Report from Study
  Country: US (occurrence: US)
  Receive Date: 20220130
  Receipt Date: 20220130
  Transmission Date: 20220423
  Serious: Yes (Other)
  Sender: FDA-Public Use
  Company Number: US-ABBVIE-21K-163-4171370-00

PATIENT
  Sex: Female

DRUGS (2)
  1. RINVOQ [Suspect]
     Active Substance: UPADACITINIB
     Indication: Rheumatoid arthritis
     Route: 048
     Dates: start: 20211015
  2. RINVOQ [Suspect]
     Active Substance: UPADACITINIB
     Route: 048

REACTIONS (6)
  - Carpectomy [Unknown]
  - Oropharyngeal pain [Unknown]
  - Peripheral swelling [Not Recovered/Not Resolved]
  - General physical health deterioration [Unknown]
  - Intervertebral disc degeneration [Unknown]
  - Pain [Unknown]

NARRATIVE: CASE EVENT DATE: 20210101
